FAERS Safety Report 19751444 (Version 1)
Quarter: 2021Q3

REPORT INFORMATION
  Report Type: Spontaneous
  Country: US (occurrence: US)
  Receive Date: 20210827
  Receipt Date: 20210827
  Transmission Date: 20211014
  Serious: No
  Sender: FDA-Public Use
  Company Number: US-MAYNE PHARMA-2020MYN000467

PATIENT

DRUGS (2)
  1. PLEXION                            /00677901/ [Concomitant]
     Indication: PRODUCT USED FOR UNKNOWN INDICATION
     Dosage: UNK
     Route: 061
     Dates: start: 20200908, end: 20200914
  2. FABIOR [Suspect]
     Active Substance: TAZAROTENE
     Indication: ACNE
     Dosage: 0.1 %, QD
     Route: 061
     Dates: start: 20200908, end: 20200913

REACTIONS (3)
  - Application site pain [Unknown]
  - Eyelid irritation [Unknown]
  - Skin exfoliation [Unknown]

NARRATIVE: CASE EVENT DATE: 202009
